FAERS Safety Report 23070013 (Version 1)
Quarter: 2023Q4

REPORT INFORMATION
  Report Type: Spontaneous
  Country: US (occurrence: US)
  Receive Date: 20231016
  Receipt Date: 20231016
  Transmission Date: 20240110
  Serious: Yes (Hospitalization, Other)
  Sender: FDA-Public Use
  Company Number: US-PFIZER INC-PV202300166620

PATIENT
  Age: 68 Year
  Sex: Female

DRUGS (2)
  1. PAXLOVID [Suspect]
     Active Substance: NIRMATRELVIR\RITONAVIR
     Indication: COVID-19 treatment
     Dosage: UNK
  2. DUPIXENT [Suspect]
     Active Substance: DUPILUMAB
     Indication: Asthma
     Dosage: 300 MG, QOW EVERY OTHER WEEK
     Route: 058
     Dates: start: 20230629

REACTIONS (4)
  - Pain [Recovering/Resolving]
  - COVID-19 [Unknown]
  - Disease recurrence [Unknown]
  - Aphonia [Unknown]

NARRATIVE: CASE EVENT DATE: 20230101
